FAERS Safety Report 5305441-6 (Version None)
Quarter: 2007Q2

REPORT INFORMATION
  Report Type: 
  Country: None (occurrence: None)
  Receive Date: 20070416
  Receipt Date: 20070328
  Transmission Date: 20071010
  Serious: Yes (Death)
  Sender: FDA-Public Use
  Company Number: A283

PATIENT
  Age: 26 Year
  Sex: Female

DRUGS (1)
  1. ALBUTEROL SULFATE [Suspect]
     Indication: BRONCHITIS CHRONIC
     Dosage: INHALATION BY NEBULIZER
     Route: 055

REACTIONS (1)
  - ASTHMA [None]
